FAERS Safety Report 7207204-3 (Version None)
Quarter: 2010Q4

REPORT INFORMATION
  Report Type: 
  Country: None (occurrence: None)
  Receive Date: 20101221
  Receipt Date: 20101212
  Transmission Date: 20110411
  Serious: Yes (Hospitalization)
  Sender: FDA-Public Use
  Company Number: 2010US005090

PATIENT
  Age: 61 Year
  Sex: Male
  Weight: 136 kg

DRUGS (8)
  1. PROGRAF [Suspect]
     Indication: LIVER TRANSPLANT
     Dosage: 1 MG, BID,
     Dates: start: 20010324
  2. BACTRIM (SULFAMETHOXAZOLE) TABLET [Concomitant]
  3. WARFARIN (WARFARIN) [Concomitant]
  4. LISINOPRIL [Concomitant]
  5. CARVEDILOL (CARVEDILOL) TABLET [Concomitant]
  6. NEPHRO-VITE (VITAMINS NOS) TABLET [Concomitant]
  7. CALCITRIOL (CALCITRIOL) TABLET [Concomitant]
  8. DIGOXIN [Concomitant]

REACTIONS (2)
  - CARDIAC DISORDER [None]
  - GOUT [None]
